FAERS Safety Report 6215040-X (Version None)
Quarter: 2009Q2

REPORT INFORMATION
  Report Type: 
  Country: None (occurrence: None)
  Receive Date: 20090604
  Receipt Date: 20090105
  Transmission Date: 20091009
  Serious: Yes (Hospitalization)
  Sender: FDA-Public Use
  Company Number: US-ASTRAZENECA-2008UW26400

PATIENT
  Age: 68 Year
  Sex: Male

DRUGS (20)
  1. OMEPRAZOLE [Suspect]
     Route: 048
  2. BIOTIN [Concomitant]
     Dosage: 600MCG 2 TABLETS A DAY
  3. ASPIRIN [Concomitant]
  4. TRAMADOL HCL [Concomitant]
     Indication: PAIN
     Dosage: 50MG ONE OR TWO TABLETS FOUR TIMES A DAY
  5. METOPROLOL TARTRATE [Concomitant]
     Dosage: 50MG 1/2 TAB IN AM AND 1/2 TAB IN PM
  6. PREDNISONE [Concomitant]
     Indication: ARTHRITIS
  7. FOLIC ACID [Concomitant]
  8. VALSARTAN [Concomitant]
     Indication: BLOOD PRESSURE
  9. GLUCOSAMINE SULFATE [Concomitant]
     Dosage: 750MG 2 TABLETS EVERY MORNING
  10. VITAMIN E [Concomitant]
  11. CALCIUM 500MG/ VITAMIN D [Concomitant]
  12. ALLOPURINOL [Concomitant]
     Indication: PROPHYLAXIS
  13. AMLODIPINE BESYLATE [Concomitant]
     Indication: BLOOD PRESSURE
     Dosage: 10MG 1/2 TABLET DAILY
  14. NIACIN [Concomitant]
     Indication: BLOOD CHOLESTEROL
  15. SIMVASTATIN [Concomitant]
     Indication: BLOOD CHOLESTEROL
  16. TERAZOSIN HCL [Concomitant]
     Indication: ILL-DEFINED DISORDER
  17. METHOTREXATE NA [Concomitant]
     Dosage: 2.5 MG 6 TABLEST WEEKLY
  18. ALENDRONATE [Concomitant]
     Dosage: 70MG 1 TABLET IN AM ONCE A WEEK
  19. FUROSEMIDE [Concomitant]
  20. NITROGLYCERIN [Concomitant]
     Dosage: 0.4MG PRN

REACTIONS (1)
  - CHEST PAIN [None]
